FAERS Safety Report 18586205 (Version 1)
Quarter: 2020Q4

REPORT INFORMATION
  Report Type: Spontaneous
  Country: FR (occurrence: FR)
  Receive Date: 20201207
  Receipt Date: 20201207
  Transmission Date: 20210114
  Serious: Yes (Other)
  Sender: FDA-Public Use
  Company Number: NVSC2020FR320496

PATIENT
  Age: 68 Year
  Sex: Female
  Weight: 68 kg

DRUGS (8)
  1. DESFLURANE. [Suspect]
     Active Substance: DESFLURANE
     Indication: GENERAL ANAESTHESIA
     Dosage: UNK UNK, UNKNOWN
     Route: 065
     Dates: start: 20170103, end: 20170103
  2. NEOSYNEPHRINE [Suspect]
     Active Substance: PHENYLEPHRINE HYDROCHLORIDE
     Indication: CATARACT OPERATION
     Dosage: 8 DF, UNKNOWN
     Route: 047
     Dates: start: 20170103, end: 20170103
  3. PROPOFOL ABBOTT [Suspect]
     Active Substance: PROPOFOL
     Indication: GENERAL ANAESTHESIA
     Dosage: UNK UNK, UNKNOWN
     Route: 065
     Dates: start: 20170103, end: 20170103
  4. INDOCOLLYRE [Suspect]
     Active Substance: INDOMETHACIN
     Indication: PREOPERATIVE CARE
     Dosage: 13 DF, UNKNOWN
     Route: 047
     Dates: start: 20161230, end: 20170103
  5. RIVOTRIL [Concomitant]
     Active Substance: CLONAZEPAM
     Indication: PRODUCT USED FOR UNKNOWN INDICATION
     Dosage: 3 DF, QD
     Route: 048
     Dates: start: 20170103
  6. MYDRIATICUM [Suspect]
     Active Substance: TROPICAMIDE
     Indication: CATARACT OPERATION
     Dosage: 12 DF, UNKNOWN
     Route: 047
     Dates: start: 20170103, end: 20170103
  7. VITABACT [Suspect]
     Active Substance: PICLOXYDINE DIHYDROCHLORIDE
     Indication: PREOPERATIVE CARE
     Dosage: 13 DF, UNKNOWN
     Route: 065
     Dates: start: 20161230, end: 20170103
  8. SUFENTANIL CITRATE. [Suspect]
     Active Substance: SUFENTANIL CITRATE
     Indication: GENERAL ANAESTHESIA
     Dosage: UNK UNK, UNKNOWN
     Route: 065
     Dates: start: 20170103, end: 20170103

REACTIONS (6)
  - Weight decreased [Not Recovered/Not Resolved]
  - Abdominal discomfort [Not Recovered/Not Resolved]
  - Incorrect route of product administration [Unknown]
  - Off label use [Unknown]
  - Taste disorder [Not Recovered/Not Resolved]
  - Feeding disorder [Not Recovered/Not Resolved]

NARRATIVE: CASE EVENT DATE: 2017
